FAERS Safety Report 7967101-2 (Version None)
Quarter: 2011Q4

REPORT INFORMATION
  Report Type: 
  Country: None (occurrence: None)
  Receive Date: 20111209
  Receipt Date: 20111128
  Transmission Date: 20120403
  Serious: Yes (Hospitalization)
  Sender: FDA-Public Use
  Company Number: DE-PFIZER INC-2011296004

PATIENT
  Age: 80 Year
  Sex: Female

DRUGS (9)
  1. PANTOPRAZOLE [Suspect]
     Indication: HELICOBACTER INFECTION
     Dosage: 40 MG, 2X/DAY
     Dates: start: 20111114, end: 20111120
  2. AMOXICILLIN [Suspect]
     Indication: HELICOBACTER INFECTION
     Dosage: 1000 MG, 2X/DAY
     Dates: start: 20111114, end: 20111120
  3. MOXONIDINE [Concomitant]
     Dosage: 0.6 MG, DAILY
  4. EBRANTIL [Concomitant]
     Dosage: 60 MG, DAILY
  5. CARVEDILOL [Concomitant]
     Dosage: 50 MG, DAILY
  6. ASPIRIN [Concomitant]
     Dosage: 100 MG, UNK
  7. CLARITHROMYCIN [Suspect]
     Indication: HELICOBACTER INFECTION
     Dosage: 500 MG, 2X/DAY
     Dates: start: 20111114, end: 20111120
  8. DIOVAN HCT [Concomitant]
     Dosage: 320 MG, DAILY
  9. PANTOPRAZOLE [Concomitant]
     Dosage: 40 MG, UNK

REACTIONS (4)
  - TONGUE COATED [None]
  - CHAPPED LIPS [None]
  - RASH [None]
  - DIARRHOEA [None]
